FAERS Safety Report 20740545 (Version 9)
Quarter: 2023Q4

REPORT INFORMATION
  Report Type: Report from Study
  Country: US (occurrence: US)
  Receive Date: 20220422
  Receipt Date: 20231116
  Transmission Date: 20240109
  Serious: Yes (Other)
  Sender: FDA-Public Use
  Company Number: US-TAKEDA-US201933752

PATIENT
  Sex: Female

DRUGS (2)
  1. HUMAN IMMUNOGLOBULIN G [Suspect]
     Active Substance: HUMAN IMMUNOGLOBULIN G
     Indication: Primary immunodeficiency syndrome
     Dosage: UNK
     Route: 065
  2. HUMAN IMMUNOGLOBULIN G [Suspect]
     Active Substance: HUMAN IMMUNOGLOBULIN G
     Indication: Immunodeficiency common variable

REACTIONS (11)
  - Pneumonia [Unknown]
  - Fatigue [Recovering/Resolving]
  - Sinusitis [Unknown]
  - Weight decreased [Unknown]
  - Sleep disorder [Unknown]
  - Cough [Not Recovered/Not Resolved]
  - Arthralgia [Unknown]
  - Blood pressure abnormal [Unknown]
  - Pain [Unknown]
  - Inappropriate schedule of product administration [Unknown]
  - Fat tissue decreased [Unknown]
